FAERS Safety Report 8801869 (Version 1)
Quarter: 2012Q4

REPORT INFORMATION
  Report Type: 
  Country: US (occurrence: US)
  Receive Date: 20120921
  Receipt Date: 20120921
  Transmission Date: 20130627
  Serious: No
  Sender: FDA-Public Use
  Company Number: US-PFIZER INC-2012232710

PATIENT
  Age: 70 Year
  Sex: Female
  Weight: 89 kg

DRUGS (2)
  1. ADVIL [Suspect]
     Indication: ARTHRITIS
     Dosage: 400 mg (2 liquigels of 200mg), 2x/day
     Route: 048
     Dates: start: 20120910, end: 20120917
  2. NORVASC [Concomitant]
     Indication: HYPERTENSION
     Dosage: 10 mg, UNK

REACTIONS (1)
  - Drug ineffective [Unknown]
